FAERS Safety Report 13304824 (Version 2)
Quarter: 2017Q2

REPORT INFORMATION
  Report Type: Spontaneous
  Country: FR (occurrence: FR)
  Receive Date: 20170308
  Receipt Date: 20170402
  Transmission Date: 20170830
  Serious: Yes (Other)
  Sender: FDA-Public Use
  Company Number: FR-GLENMARK PHARMACEUTICALS-2017GMK026660

PATIENT
  Age: 29 Year
  Sex: Male

DRUGS (8)
  1. UVESTEROL [Concomitant]
     Active Substance: ASCORBIC ACID\ERGOCALCIFEROL\RETINOL\TOCOPHEROL
     Indication: SCHIZOPHRENIA
     Dosage: 1 BULB/3 MONTHS, QD
     Route: 065
  2. OXCARBAZEPINE. [Suspect]
     Active Substance: OXCARBAZEPINE
     Indication: PARTIAL SEIZURES
     Dosage: 750 MG, QD
     Route: 065
  3. CLOZAPINE. [Interacting]
     Active Substance: CLOZAPINE
     Dosage: 850 MG, QD
     Route: 065
  4. PALIPERIDONE. [Concomitant]
     Active Substance: PALIPERIDONE
     Indication: SCHIZOPHRENIA
     Dosage: 100 MG, PER 28 DAYS
     Route: 065
  5. MACROGOL [Concomitant]
     Active Substance: POLYETHYLENE GLYCOLS
     Indication: SCHIZOPHRENIA
     Dosage: 2 SACHETS, QD
     Route: 065
  6. UVEDOSE [Concomitant]
     Active Substance: CHOLECALCIFEROL
     Indication: SCHIZOPHRENIA
     Dosage: 1 DF, UNK
     Route: 065
  7. CLOZAPINE. [Interacting]
     Active Substance: CLOZAPINE
     Indication: SCHIZOPHRENIA
     Dosage: 900 MG, QD
     Route: 065
  8. PHLOROGLUCINOL [Concomitant]
     Active Substance: PHLOROGLUCINOL
     Indication: SCHIZOPHRENIA
     Dosage: 1 DF, PRN
     Route: 065

REACTIONS (4)
  - Condition aggravated [Recovering/Resolving]
  - Drug interaction [Recovering/Resolving]
  - Psychotic disorder [Recovering/Resolving]
  - Partial seizures [Recovering/Resolving]
